FAERS Safety Report 8695574 (Version 3)
Quarter: 2012Q4

REPORT INFORMATION
  Report Type: Report from Study
  Country: US (occurrence: US)
  Receive Date: 20120731
  Receipt Date: 20120907
  Transmission Date: 20130627
  Serious: Yes (Life-Threatening, Hospitalization)
  Sender: FDA-Public Use
  Company Number: US-PFIZER INC-2012181834

PATIENT
  Age: 66 Year
  Sex: Male

DRUGS (3)
  1. CYTARABINE [Suspect]
     Indication: ACUTE MYELOID LEUKAEMIA
     Dosage: 3360 mg, (total)
     Dates: start: 20120525
  2. SPRYCEL [Suspect]
     Indication: ACUTE MYELOID LEUKAEMIA
     Dosage: 1200 mg, (total)
     Route: 048
     Dates: start: 20120525, end: 20120612
  3. DAUNORUBICIN [Suspect]
     Indication: ACUTE MYELOID LEUKAEMIA
     Dosage: 435 mg,  (total)
     Route: 042
     Dates: start: 20120524

REACTIONS (4)
  - Renal failure acute [Recovering/Resolving]
  - Melaena [Recovering/Resolving]
  - Sepsis [Recovering/Resolving]
  - Decreased appetite [Recovering/Resolving]
